FAERS Safety Report 4926243-6 (Version None)
Quarter: 2006Q1

REPORT INFORMATION
  Report Type: 
  Country: None (occurrence: None)
  Receive Date: 20060228
  Receipt Date: 20051215
  Transmission Date: 20060701
  Serious: No
  Sender: FDA-Public Use
  Company Number: US-GLAXOSMITHKLINE-A0585987A

PATIENT
  Age: 54 Year
  Sex: Male

DRUGS (5)
  1. LAMICTAL [Suspect]
     Indication: BIPOLAR DISORDER
     Dosage: 175MG PER DAY
     Route: 048
     Dates: start: 20050801
  2. LEXAPRO [Concomitant]
  3. UNKNOWN MEDICATION [Concomitant]
  4. ZOCOR [Concomitant]
  5. UNKNOWN MEDICATION [Concomitant]

REACTIONS (2)
  - RASH [None]
  - SWELLING FACE [None]
